FAERS Safety Report 21696171 (Version 1)
Quarter: 2022Q4

REPORT INFORMATION
  Report Type: Spontaneous
  Country: US (occurrence: None)
  Receive Date: 20221207
  Receipt Date: 20221207
  Transmission Date: 20230113
  Serious: Yes (Hospitalization)
  Sender: FDA-Public Use
  Company Number: None

PATIENT
  Age: 76 Year
  Sex: Male
  Weight: 54.43 kg

DRUGS (1)
  1. LITHIUM CARBONATE [Suspect]
     Active Substance: LITHIUM CARBONATE
     Indication: Depression
     Dosage: OTHER QUANTITY : ONE TAB;?FREQUENCY : TWICE A DAY;?
     Route: 048
     Dates: start: 20220823, end: 20220829

REACTIONS (6)
  - Tremor [None]
  - Myoclonus [None]
  - Mental disorder [None]
  - Toxicity to various agents [None]
  - Catatonia [None]
  - Blood creatinine increased [None]

NARRATIVE: CASE EVENT DATE: 20220831
